FAERS Safety Report 9772678 (Version 1)
Quarter: 2013Q4

REPORT INFORMATION
  Report Type: Spontaneous
  Country: US (occurrence: US)
  Receive Date: 20131219
  Receipt Date: 20131219
  Transmission Date: 20140711
  Serious: Yes (Hospitalization, Other)
  Sender: FDA-Public Use
  Company Number: US-PFIZER INC-2013358959

PATIENT
  Age: 73 Year
  Sex: Female
  Weight: 89.8 kg

DRUGS (3)
  1. GLUCOTROL [Suspect]
     Indication: DIABETES MELLITUS
     Dosage: 10 MG, 1X/DAY
     Dates: start: 1993
  2. GLIPIZIDE [Suspect]
     Indication: DIABETES MELLITUS
     Dosage: UNK
     Dates: start: 2012
  3. TRAVATAN Z [Concomitant]
     Indication: GLAUCOMA
     Dosage: UNK
     Route: 047

REACTIONS (5)
  - Fall [Unknown]
  - Upper limb fracture [Unknown]
  - Haematoma [Unknown]
  - Malaise [Unknown]
  - Abdominal pain upper [Unknown]
